FAERS Safety Report 9850440 (Version 1)
Quarter: 2013Q4

REPORT INFORMATION
  Report Type: Spontaneous
  Country: US (occurrence: None)
  Receive Date: 20131226
  Receipt Date: 20131226
  Transmission Date: 20140711
  Serious: Yes (Other)
  Sender: FDA-Public Use
  Company Number: PHEH2012US008741

PATIENT
  Age: 67 Year
  Sex: Male

DRUGS (7)
  1. AFINITOR (RAD) UNKNOWN [Suspect]
     Indication: RENAL CELL CARCINOMA
     Dates: start: 20110825
  2. COLTRAMYL (THIOCOLCHICOSIDE) [Concomitant]
  3. EXFORGE (VALSARTAN, AMLODIPINE BESILATE) [Concomitant]
  4. DRONABINOL (DRONABINOL) [Concomitant]
  5. JALYN (DUTASTERIDE, TAMSULOSIN HYDROCHLORIDE) [Concomitant]
  6. MIRTAZAPINE (MIRTAZAPINE) [Concomitant]
  7. JANTOVEN (WARFARIN) [Concomitant]

REACTIONS (4)
  - Haemorrhage [None]
  - Epistaxis [None]
  - Asthenia [None]
  - Weight decreased [None]
